FAERS Safety Report 5977774-1 (Version None)
Quarter: 2008Q4

REPORT INFORMATION
  Report Type: 
  Country: None (occurrence: None)
  Receive Date: 20081203
  Receipt Date: 20081124
  Transmission Date: 20090506
  Serious: Yes (Hospitalization, Other)
  Sender: FDA-Public Use
  Company Number: US-ELI_LILLY_AND_COMPANY-US200809006247

PATIENT
  Sex: Female

DRUGS (4)
  1. HUMALOG [Suspect]
  2. HUMULIN R [Suspect]
  3. LANTUS [Concomitant]
  4. METFORMIN HCL [Concomitant]
     Dosage: 1000 MG/KG, 2/D
     Route: 048

REACTIONS (9)
  - BLOOD GLUCOSE INCREASED [None]
  - CONSTIPATION [None]
  - DEEP VEIN THROMBOSIS [None]
  - INCORRECT ROUTE OF DRUG ADMINISTRATION [None]
  - INJECTION SITE INJURY [None]
  - IRON DEFICIENCY ANAEMIA [None]
  - PRESYNCOPE [None]
  - PULMONARY EMBOLISM [None]
  - PULMONARY HYPERTENSION [None]
